FAERS Safety Report 10450978 (Version 2)
Quarter: 2014Q4

REPORT INFORMATION
  Report Type: Spontaneous
  Country: US (occurrence: US)
  Receive Date: 20140912
  Receipt Date: 20141002
  Transmission Date: 20150528
  Serious: Yes (Other)
  Sender: FDA-Public Use
  Company Number: US-PFIZER INC-2014249403

PATIENT
  Age: 64 Year
  Sex: Male
  Weight: 94.8 kg

DRUGS (12)
  1. NORVASC [Suspect]
     Active Substance: AMLODIPINE BESYLATE
     Dosage: 5 MG, 1X/DAY
     Dates: start: 201408
  2. CARDURA [Suspect]
     Active Substance: DOXAZOSIN MESYLATE
     Dosage: 1 MG, UNK
     Dates: start: 2011
  3. VITAMIN C [Concomitant]
     Active Substance: ASCORBIC ACID
     Dosage: 0.4 MG, AS NEEDED
     Route: 048
  4. FISH OIL [Concomitant]
     Active Substance: FISH OIL
     Dosage: 1000 MG, 1X/DAY
  5. ASA [Concomitant]
     Active Substance: ASPIRIN
     Dosage: 81 MG, 1X/DAY
  6. NIACIN. [Concomitant]
     Active Substance: NIACIN
     Dosage: 1000 MG, PM
  7. MULTIPLE VITAMINS [Concomitant]
     Active Substance: VITAMINS
  8. HYZAAR [Suspect]
     Active Substance: HYDROCHLOROTHIAZIDE\LOSARTAN POTASSIUM
     Dosage: 100/25 MG, 1X/DAY
     Dates: start: 1996
  9. NORVASC [Suspect]
     Active Substance: AMLODIPINE BESYLATE
     Indication: HYPERTENSION
     Dosage: 10 MG, UNK
     Route: 048
     Dates: start: 20130715, end: 20140814
  10. CARDURA [Suspect]
     Active Substance: DOXAZOSIN MESYLATE
     Dosage: 2 MG, UNK
     Dates: start: 2013, end: 2014
  11. TESTIM [Concomitant]
     Active Substance: TESTOSTERONE
     Dosage: 100 QD
  12. CRESTOR [Concomitant]
     Active Substance: ROSUVASTATIN CALCIUM
     Dosage: 10 MG, 1X/DAY

REACTIONS (5)
  - Syncope [Recovered/Resolved]
  - Altered state of consciousness [Recovering/Resolving]
  - Dizziness [Recovered/Resolved]
  - Weight decreased [Unknown]
  - Malaise [Recovering/Resolving]

NARRATIVE: CASE EVENT DATE: 2014
